FAERS Safety Report 8100220 (Version 2)
Quarter: 2013Q4

REPORT INFORMATION
  Report Type: Spontaneous
  Country: FR (occurrence: FR)
  Receive Date: 20110822
  Receipt Date: 20131002
  Transmission Date: 20140711
  Serious: Yes (Other)
  Sender: FDA-Public Use
  Company Number: FR-GLAXOSMITHKLINE-B0740909A

PATIENT
  Age: 63 Year
  Sex: Female

DRUGS (6)
  1. REQUIP LP [Suspect]
     Indication: PARKINSON^S DISEASE
     Dosage: 20MG PER DAY
     Route: 048
  2. MODOPAR [Suspect]
     Indication: PARKINSON^S DISEASE
     Dosage: 125MG UNKNOWN
     Route: 048
     Dates: start: 20100923
  3. STALEVO [Suspect]
     Indication: PARKINSON^S DISEASE
     Dosage: 1UNIT SIX TIMES PER DAY
     Route: 048
     Dates: end: 20100923
  4. AZILECT [Suspect]
     Indication: PARKINSON^S DISEASE
     Dosage: 1MG PER DAY
     Route: 048
     Dates: start: 20110208
  5. TAHOR [Concomitant]
     Route: 065
  6. DOMPERIDONE [Concomitant]
     Route: 065

REACTIONS (3)
  - Malignant melanoma [Not Recovered/Not Resolved]
  - Metastases to skin [Unknown]
  - Metastases to lymph nodes [Unknown]
